FAERS Safety Report 8980384 (Version 2)
Quarter: 2013Q3

REPORT INFORMATION
  Report Type: Report from Study
  Country: JP (occurrence: JP)
  Receive Date: 20121221
  Receipt Date: 20130920
  Transmission Date: 20140515
  Serious: Yes (Hospitalization)
  Sender: FDA-Public Use
  Company Number: JP-VERTEX PHARMACEUTICALS INC.-AE-2012-006062

PATIENT
  Age: 67 Year
  Sex: Female

DRUGS (9)
  1. VX-950 (TELAPREVIR) [Suspect]
     Indication: CHRONIC HEPATITIS C
     Dosage: 1500 MG, QD
     Route: 048
     Dates: start: 20120314, end: 20120418
  2. REBETOL [Suspect]
     Indication: CHRONIC HEPATITIS C
     Dosage: 600 MG, QD
     Route: 048
     Dates: start: 20120314, end: 20120418
  3. PEGINTRON [Suspect]
     Indication: CHRONIC HEPATITIS C
     Dosage: 1.5 ?G/KG, QW
     Route: 058
     Dates: start: 20120314, end: 20120418
  4. ALLELOCK [Concomitant]
     Dosage: 5 MG, QD
     Route: 048
     Dates: start: 20120314, end: 20120328
  5. ALLELOCK [Concomitant]
     Dosage: 5 MG, QD
     Route: 048
     Dates: start: 20120328, end: 20120403
  6. DEPAS [Concomitant]
     Dosage: 0.5 MG, QD
     Route: 048
     Dates: start: 20120328
  7. LENDORMIN [Concomitant]
     Dosage: 0.25 MG, QD
     Route: 048
     Dates: start: 20120314, end: 20120331
  8. LENDORMIN [Concomitant]
     Dosage: 0.25 MG, QD
     Route: 048
     Dates: start: 20120425
  9. ADELAVIN NO.9 [Concomitant]
     Dosage: 2 ML, QD
     Route: 042
     Dates: start: 20120425, end: 20120508

REACTIONS (2)
  - Decreased appetite [Recovered/Resolved]
  - Haemoglobin decreased [Recovered/Resolved]
